FAERS Safety Report 9314071 (Version 1)
Quarter: 2013Q2

REPORT INFORMATION
  Report Type: Report from Study
  Country: JP (occurrence: JP)
  Receive Date: 20130529
  Receipt Date: 20130529
  Transmission Date: 20140414
  Serious: Yes (Hospitalization)
  Sender: FDA-Public Use
  Company Number: JP-009507513-1305JPN014214

PATIENT
  Age: 70 Year
  Sex: Female

DRUGS (4)
  1. REMERON TABLETS 15MG [Suspect]
     Indication: DEPRESSION
     Dosage: 15 MG, QD
     Route: 048
     Dates: start: 20101227, end: 20111113
  2. UNKNOWNDRUG [Suspect]
     Indication: DEPRESSION
     Dosage: 40 MG, QD POR
     Route: 048
     Dates: start: 20100921
  3. CIMETIDINE [Suspect]
     Indication: GASTRIC ULCER
     Dosage: 800 MG, QD POR DIVIDED DOSE FREQUENCY UNKNOWN
     Route: 048
  4. OMEPRAZOLE [Concomitant]
     Indication: GASTRIC ULCER
     Dosage: 10 MG, QD POR DIVIDED DOSE FREQUENCY UNKNOWN
     Route: 048

REACTIONS (3)
  - Femoral neck fracture [Recovered/Resolved]
  - Fall [Recovered/Resolved]
  - Weight increased [Unknown]
